FAERS Safety Report 6559296-2 (Version None)
Quarter: 2010Q1

REPORT INFORMATION
  Report Type: 
  Country: None (occurrence: None)
  Receive Date: 20100129
  Receipt Date: 20090911
  Transmission Date: 20100710
  Serious: No
  Sender: FDA-Public Use
  Company Number: US-ABBOTT-09P-163-0586385-00

PATIENT
  Age: 27 Year
  Sex: Female
  Weight: 68.1 kg

DRUGS (3)
  1. HUMIRA [Suspect]
     Indication: CROHN'S DISEASE
     Route: 058
     Dates: start: 20090619, end: 20090628
  2. HUMIRA [Suspect]
     Route: 058
     Dates: start: 20090712, end: 20090712
  3. HUMIRA [Suspect]
     Route: 058

REACTIONS (7)
  - ABDOMINAL PAIN [None]
  - INCORRECT DRUG ADMINISTRATION DURATION [None]
  - MIGRAINE [None]
  - MUSCULOSKELETAL STIFFNESS [None]
  - PARAESTHESIA [None]
  - SENSORY DISTURBANCE [None]
  - VISUAL IMPAIRMENT [None]
